FAERS Safety Report 25771605 (Version 1)
Quarter: 2025Q3

REPORT INFORMATION
  Report Type: Spontaneous
  Country: US (occurrence: US)
  Receive Date: 20250908
  Receipt Date: 20250908
  Transmission Date: 20251020
  Serious: No
  Sender: DOMPE FARMACEUTICI
  Company Number: US-FARMAPROD-202505-1485

PATIENT
  Age: 68 Year
  Sex: Male

DRUGS (15)
  1. OXERVATE [Suspect]
     Active Substance: CENEGERMIN-BKBJ
     Indication: Neurotrophic keratopathy
     Route: 047
     Dates: start: 20190708, end: 20190902
  2. OXERVATE [Suspect]
     Active Substance: CENEGERMIN-BKBJ
     Route: 047
     Dates: start: 20230711
  3. OXERVATE [Suspect]
     Active Substance: CENEGERMIN-BKBJ
     Route: 047
     Dates: start: 20231116
  4. OXERVATE [Suspect]
     Active Substance: CENEGERMIN-BKBJ
     Route: 047
     Dates: start: 20250430
  5. OXERVATE [Suspect]
     Active Substance: CENEGERMIN-BKBJ
  6. JARDIANCE [Concomitant]
     Active Substance: EMPAGLIFLOZIN
  7. TIMOLOL MALEATE [Concomitant]
     Active Substance: TIMOLOL MALEATE
  8. PREDNISOLONE ACETATE [Concomitant]
     Active Substance: PREDNISOLONE ACETATE
  9. DOXYCYCLINE HYCLATE [Concomitant]
     Active Substance: DOXYCYCLINE HYCLATE
  10. HYDROCHLOROTHIAZIDE [Concomitant]
     Active Substance: HYDROCHLOROTHIAZIDE
  11. ROSUVASTATIN CALCIUM [Concomitant]
     Active Substance: ROSUVASTATIN CALCIUM
  12. GLIPIZIDE [Concomitant]
     Active Substance: GLIPIZIDE
  13. METFORMIN HYDROCHLORIDE [Concomitant]
     Active Substance: METFORMIN HYDROCHLORIDE
  14. SOLIQUA 100/33 [Concomitant]
     Active Substance: INSULIN GLARGINE\LIXISENATIDE
  15. WHOLE BLOOD [Concomitant]
     Active Substance: WHOLE BLOOD

REACTIONS (4)
  - Eye pain [Not Recovered/Not Resolved]
  - Eyelid pain [Not Recovered/Not Resolved]
  - Ocular discomfort [Unknown]
  - Vision blurred [Not Recovered/Not Resolved]

NARRATIVE: CASE EVENT DATE: 20250430
